FAERS Safety Report 9695436 (Version 1)
Quarter: 2013Q4

REPORT INFORMATION
  Report Type: Spontaneous
  Country: CA (occurrence: CA)
  Receive Date: 20131119
  Receipt Date: 20131119
  Transmission Date: 20140711
  Serious: Yes (Hospitalization)
  Sender: FDA-Public Use
  Company Number: PHHY2013CA131571

PATIENT
  Age: 65 Year
  Sex: Female

DRUGS (2)
  1. CLOZARIL [Suspect]
     Dosage: 200 MG, UNK
     Dates: start: 20131109
  2. CLOZARIL [Suspect]
     Dosage: 100 MG, UNK
     Dates: start: 20131110

REACTIONS (5)
  - Hypotension [Unknown]
  - Fall [Unknown]
  - Loss of consciousness [Unknown]
  - Delirium [Unknown]
  - Drug dispensing error [Unknown]
